FAERS Safety Report 5314521-0 (Version None)
Quarter: 2007Q2

REPORT INFORMATION
  Report Type: 
  Country: None (occurrence: None)
  Receive Date: 20070501
  Receipt Date: 20070501
  Transmission Date: 20071010
  Serious: No
  Sender: FDA-Public Use
  Company Number: None

PATIENT
  Age: 61 Year
  Sex: Male

DRUGS (1)
  1. DOBUTAMINE HCL [Suspect]
     Dosage: 1250MG/250ML IV DRIP
     Route: 041
     Dates: start: 20060927, end: 20060927

REACTIONS (3)
  - BLOOD PRESSURE DECREASED [None]
  - CARDIAC OUTPUT DECREASED [None]
  - OXYGEN SATURATION DECREASED [None]
